FAERS Safety Report 8324061 (Version 2)
Quarter: 2013Q1

REPORT INFORMATION
  Report Type: Report from Study
  Country: US (occurrence: US)
  Receive Date: 20120105
  Receipt Date: 20130103
  Transmission Date: 20140127
  Serious: No
  Sender: FDA-Public Use
  Company Number: US-ABBOTT-11P-163-0868304-00

PATIENT
  Sex: Female

DRUGS (1)
  1. SYNTHROID [Suspect]
     Indication: HYPOTHYROIDISM

REACTIONS (1)
  - Diarrhoea [Recovered/Resolved]
